FAERS Safety Report 14839889 (Version 4)
Quarter: 2018Q4

REPORT INFORMATION
  Report Type: Report from Study
  Country: CA (occurrence: CA)
  Receive Date: 20180503
  Receipt Date: 20181127
  Transmission Date: 20190204
  Serious: Yes (Other)
  Sender: FDA-Public Use
  Company Number: CA-BRISTOL-MYERS SQUIBB COMPANY-BMS-2017-092363

PATIENT
  Sex: Female

DRUGS (1)
  1. ABATACEPT [Suspect]
     Active Substance: ABATACEPT
     Indication: RHEUMATOID ARTHRITIS
     Dosage: 125 MG, QWK
     Route: 058
     Dates: start: 20170914

REACTIONS (13)
  - Sensory loss [Unknown]
  - Oral pain [Recovering/Resolving]
  - White blood cell count decreased [Unknown]
  - Fracture [Unknown]
  - Inflammation [Recovering/Resolving]
  - Arthralgia [Unknown]
  - Hypoaesthesia [Unknown]
  - Hypokinesia [Unknown]
  - Osteoarthritis [Unknown]
  - Insomnia [Unknown]
  - Fall [Unknown]
  - Adverse event [Unknown]
  - Pain in extremity [Unknown]
